FAERS Safety Report 6277882-4 (Version None)
Quarter: 2009Q3

REPORT INFORMATION
  Report Type: 
  Country: None (occurrence: None)
  Receive Date: 20090722
  Receipt Date: 20090714
  Transmission Date: 20100115
  Serious: Yes (Other)
  Sender: FDA-Public Use
  Company Number: JP-MERCK-0907USA02799

PATIENT
  Age: 73 Year
  Sex: Male

DRUGS (2)
  1. PEPCID [Suspect]
     Route: 048
  2. GRAMALIL [Suspect]
     Route: 048

REACTIONS (1)
  - PULMONARY FIBROSIS [None]
